FAERS Safety Report 20193647 (Version 1)
Quarter: 2021Q4

REPORT INFORMATION
  Report Type: Spontaneous
  Country: US (occurrence: US)
  Receive Date: 20211216
  Receipt Date: 20211216
  Transmission Date: 20220303
  Serious: Yes (Disabling, Other)
  Sender: FDA-Public Use
  Company Number: US-ABBVIE-21K-163-4197774-00

PATIENT
  Age: 16 Year
  Sex: Female

DRUGS (1)
  1. HUMIRA [Suspect]
     Active Substance: ADALIMUMAB
     Indication: Crohn^s disease
     Route: 058
     Dates: end: 20211203

REACTIONS (7)
  - Blindness unilateral [Unknown]
  - Gastrointestinal disorder [Unknown]
  - Small intestinal obstruction [Unknown]
  - Abdominal hernia [Unknown]
  - Wrong technique in product usage process [Unknown]
  - Myopia [Unknown]
  - Inflammation [Unknown]

NARRATIVE: CASE EVENT DATE: 20211201
